FAERS Safety Report 9698537 (Version 1)
Quarter: 2013Q4

REPORT INFORMATION
  Report Type: Spontaneous
  Country: FR (occurrence: FR)
  Receive Date: 20131120
  Receipt Date: 20131120
  Transmission Date: 20140711
  Serious: Yes (Other)
  Sender: FDA-Public Use
  Company Number: FR-PFIZER INC-2013327693

PATIENT
  Age: 49 Year
  Sex: Male

DRUGS (6)
  1. VANCOMYCIN [Suspect]
     Dosage: UNK
  2. GENTAMYCIN [Suspect]
     Dosage: UNK
  3. TAZOCILLINE [Concomitant]
     Dosage: 4 G, 2X/DAY
     Dates: start: 20130928, end: 20131018
  4. LASILIX [Concomitant]
     Dosage: UNK
     Dates: start: 20131005, end: 20131018
  5. HEPARIN [Concomitant]
     Dosage: UNK
     Dates: end: 20131018
  6. INEXIUM /01479302/ [Concomitant]
     Dosage: UNK
     Dates: start: 201309, end: 20131016

REACTIONS (1)
  - Renal tubular necrosis [Unknown]
